FAERS Safety Report 17088624 (Version 1)
Quarter: 2019Q4

REPORT INFORMATION
  Report Type: Spontaneous
  Country: US (occurrence: US)
  Receive Date: 20191031
  Receipt Date: 20191031
  Transmission Date: 20200122
  Serious: No
  Sender: FDA-Public Use
  Company Number: None

PATIENT
  Age: 44 Year
  Sex: Female

DRUGS (1)
  1. GLATIRAMER 40MG PFS INJ (12 BOX) [Suspect]
     Active Substance: GLATIRAMER ACETATE
     Route: 058
     Dates: start: 201806

REACTIONS (4)
  - Death of relative [None]
  - Stress [None]
  - Vomiting [None]
  - Migraine [None]

NARRATIVE: CASE EVENT DATE: 20191017
